FAERS Safety Report 7242157 (Version 3)
Quarter: 2013Q1

REPORT INFORMATION
  Report Type: Spontaneous
  Country: FR (occurrence: FR)
  Receive Date: 20100111
  Receipt Date: 20130213
  Transmission Date: 20140127
  Serious: Yes (Other)
  Sender: FDA-Public Use
  Company Number: FR-RB-000248-10

PATIENT
  Age: 22 Year
  Sex: Female

DRUGS (1)
  1. BUPRENORPHINE [Suspect]
     Indication: PRODUCT USED FOR UNKNOWN INDICATION
     Dosage: DOSING DETAILS UNKNOWN
     Route: 065

REACTIONS (4)
  - Abortion induced [Recovered/Resolved]
  - Exposure via body fluid [Recovered/Resolved]
  - Dwarfism [Recovered/Resolved]
  - Multiple congenital abnormalities [Recovered/Resolved]
